FAERS Safety Report 17372913 (Version 1)
Quarter: 2020Q1

REPORT INFORMATION
  Report Type: Spontaneous
  Country: US (occurrence: US)
  Receive Date: 20200205
  Receipt Date: 20200205
  Transmission Date: 20200409
  Serious: No
  Sender: FDA-Public Use
  Company Number: US-GALDERMA-US19016529

PATIENT
  Age: 56 Year
  Sex: Male

DRUGS (1)
  1. SOOLANTRA [Suspect]
     Active Substance: IVERMECTIN
     Indication: ROSACEA
     Dosage: 1%?45G
     Route: 061
     Dates: start: 201903, end: 201903

REACTIONS (1)
  - Rash papular [Recovered/Resolved]

NARRATIVE: CASE EVENT DATE: 201903
